FAERS Safety Report 5258932-0 (Version None)
Quarter: 2007Q1

REPORT INFORMATION
  Report Type: 
  Country: None (occurrence: None)
  Receive Date: 20070308
  Receipt Date: 20070227
  Transmission Date: 20070707
  Serious: No
  Sender: FDA-Public Use
  Company Number: TAP2007Q00003

PATIENT
  Age: 9 Month
  Sex: Female
  Weight: 7.7 kg

DRUGS (1)
  1. PREVACID [Suspect]
     Indication: GASTROOESOPHAGEAL REFLUX DISEASE
     Dosage: 7.5 MG, 2 IN 1 D, PER ORAL
     Route: 048

REACTIONS (5)
  - BLOOD CALCIUM INCREASED [None]
  - BLOOD PARATHYROID HORMONE DECREASED [None]
  - RICKETS [None]
  - TORUS FRACTURE [None]
  - VITAMIN D DEFICIENCY [None]
